FAERS Safety Report 25805570 (Version 1)
Quarter: 2025Q3

REPORT INFORMATION
  Report Type: Spontaneous
  Country: US (occurrence: US)
  Receive Date: 20250916
  Receipt Date: 20250916
  Transmission Date: 20251020
  Serious: No
  Sender: TORRENT PHARMA INC.
  Company Number: US-TORRENT-00014514

PATIENT

DRUGS (1)
  1. DAPSONE [Suspect]
     Active Substance: DAPSONE
     Indication: Product used for unknown indication
     Route: 061

REACTIONS (6)
  - Skin irritation [Unknown]
  - Erythema [Unknown]
  - Product physical consistency issue [Unknown]
  - Instillation site foreign body sensation [Unknown]
  - Discomfort [Unknown]
  - Product substitution issue [Unknown]
